FAERS Safety Report 4629707-8 (Version None)
Quarter: 2005Q2

REPORT INFORMATION
  Report Type: 
  Country: None (occurrence: None)
  Receive Date: 20050407
  Receipt Date: 20050317
  Transmission Date: 20051028
  Serious: Yes (Hospitalization)
  Sender: FDA-Public Use
  Company Number: EWC050343221

PATIENT
  Age: 70 Year
  Sex: Male

DRUGS (4)
  1. FORTEO [Suspect]
     Indication: OSTEOPOROSIS
     Dates: start: 20041113
  2. TRANSTEX PATCH [Concomitant]
  3. CORTISONE [Concomitant]
  4. ANTIBIOTICS [Concomitant]

REACTIONS (4)
  - CHRONIC OBSTRUCTIVE AIRWAYS DISEASE EXACERBATED [None]
  - FATIGUE [None]
  - HYPERHIDROSIS [None]
  - MUSCLE SPASMS [None]
